FAERS Safety Report 19770383 (Version 2)
Quarter: 2021Q3

REPORT INFORMATION
  Report Type: Report from Study
  Country: US (occurrence: US)
  Receive Date: 20210901
  Receipt Date: 20210930
  Transmission Date: 20211014
  Serious: No
  Sender: FDA-Public Use
  Company Number: NVSC2021US195688

PATIENT
  Sex: Female

DRUGS (1)
  1. PIQRAY [Suspect]
     Active Substance: ALPELISIB
     Indication: BREAST CANCER
     Dosage: 300 MG, QOD
     Route: 065

REACTIONS (11)
  - Injury [Unknown]
  - Weight decreased [Unknown]
  - Dehydration [Unknown]
  - Dry skin [Unknown]
  - Fall [Unknown]
  - Stomatitis [Unknown]
  - Urticaria [Unknown]
  - Back pain [Unknown]
  - Diarrhoea [Unknown]
  - Rash [Unknown]
  - Eating disorder [Unknown]
